FAERS Safety Report 6527104-1 (Version None)
Quarter: 2009Q4

REPORT INFORMATION
  Report Type: 
  Country: None (occurrence: None)
  Receive Date: 20091229
  Receipt Date: 20091215
  Transmission Date: 20100525
  Serious: Yes (Death)
  Sender: FDA-Public Use
  Company Number: FABR-1001122

PATIENT
  Age: 18 Year
  Sex: Male

DRUGS (1)
  1. FABRAZYME [Suspect]
     Indication: FABRY'S DISEASE
     Dates: end: 20091215

REACTIONS (5)
  - ACUTE PULMONARY OEDEMA [None]
  - CARDIAC ARREST [None]
  - DIARRHOEA [None]
  - DYSURIA [None]
  - HYPOTENSION [None]
